FAERS Safety Report 16458430 (Version 1)
Quarter: 2019Q2

REPORT INFORMATION
  Report Type: Spontaneous
  Country: US (occurrence: US)
  Receive Date: 20190620
  Receipt Date: 20190620
  Transmission Date: 20190711
  Serious: No
  Sender: FDA-Public Use
  Company Number: US-THERAPEUTICSMD-2019TMD00375

PATIENT
  Age: 62 Year
  Sex: Female
  Weight: 78.01 kg

DRUGS (13)
  1. IMVEXXY [Suspect]
     Active Substance: ESTRADIOL
     Indication: VAGINAL DISORDER
  2. IMVEXXY [Suspect]
     Active Substance: ESTRADIOL
     Indication: POSTMENOPAUSE
     Dosage: 10 ?G, 2X/WEEK
     Route: 067
     Dates: start: 201902
  3. INSULIN [Concomitant]
     Active Substance: INSULIN NOS
     Dosage: 15 U
  4. PANTOPRAZOLE [Concomitant]
     Active Substance: PANTOPRAZOLE
     Dosage: 40 MG, 1X/DAY
  5. LORATADINE. [Concomitant]
     Active Substance: LORATADINE
     Dosage: 10 MG, 1X/DAY
  6. MONTELUKAST [Concomitant]
     Active Substance: MONTELUKAST SODIUM
     Dosage: 10 MG, 1X/DAY
  7. ALIGN [Concomitant]
     Active Substance: BIFIDOBACTERIUM LONGUM SUBSP. INFANTIS
  8. JANUVIA [Concomitant]
     Active Substance: SITAGLIPTIN PHOSPHATE
  9. LEVOXYL [Concomitant]
     Active Substance: LEVOTHYROXINE SODIUM
     Dosage: 25 ?G, 1X/DAY
  10. MELOXICAM. [Concomitant]
     Active Substance: MELOXICAM
     Dosage: 7.5 MG, 1X/DAY
  11. IMVEXXY [Suspect]
     Active Substance: ESTRADIOL
     Indication: BLADDER DISORDER
  12. RESTASIS [Concomitant]
     Active Substance: CYCLOSPORINE
  13. UNSPECIFIED TINCTURE [Concomitant]

REACTIONS (3)
  - Off label use [Not Recovered/Not Resolved]
  - Blood glucose increased [Recovering/Resolving]
  - Breast tenderness [Recovered/Resolved]

NARRATIVE: CASE EVENT DATE: 201902
